FAERS Safety Report 12890983 (Version 1)
Quarter: 2016Q4

REPORT INFORMATION
  Report Type: Spontaneous
  Country: US (occurrence: US)
  Receive Date: 20161026
  Receipt Date: 20161026
  Transmission Date: 20170207
  Serious: Yes (Hospitalization, Other)
  Sender: FDA-Public Use
  Company Number: None

PATIENT
  Age: 31 Year
  Sex: Male
  Weight: 72 kg

DRUGS (2)
  1. OMEPRAZOLE. [Suspect]
     Active Substance: OMEPRAZOLE
  2. RIBAVIRIN. [Suspect]
     Active Substance: RIBAVIRIN

REACTIONS (6)
  - Dyspepsia [None]
  - Fatigue [None]
  - Paraesthesia [None]
  - Incorrect dose administered [None]
  - Inappropriate schedule of drug administration [None]
  - Haematemesis [None]

NARRATIVE: CASE EVENT DATE: 20161015
